FAERS Safety Report 9143647 (Version 2)
Quarter: 2013Q1

REPORT INFORMATION
  Report Type: Spontaneous
  Country: FR (occurrence: FR)
  Receive Date: 20130306
  Receipt Date: 20130312
  Transmission Date: 20140127
  Serious: Yes (Hospitalization)
  Sender: FDA-Public Use
  Company Number: FR-MERCK-1302FRA012254

PATIENT
  Age: 39 Year
  Sex: Female

DRUGS (2)
  1. ORGALUTRAN [Suspect]
     Indication: PRODUCT USED FOR UNKNOWN INDICATION
     Dosage: UNK
     Route: 058
     Dates: start: 200804
  2. DECAPEPTYL (TRIPTORELIN ACETATE) [Suspect]
     Indication: PRODUCT USED FOR UNKNOWN INDICATION

REACTIONS (2)
  - Type I hypersensitivity [Recovered/Resolved]
  - Rash [Recovered/Resolved]
